FAERS Safety Report 8474157 (Version 2)
Quarter: 2012Q4

REPORT INFORMATION
  Report Type: 
  Country: US (occurrence: US)
  Receive Date: 20120323
  Receipt Date: 20121010
  Transmission Date: 20130627
  Serious: Yes (Other)
  Sender: FDA-Public Use
  Company Number: US-US-EMD SERONO, INC.-7116351

PATIENT
  Age: 29 None
  Sex: Male

DRUGS (1)
  1. REBIF [Suspect]
     Indication: MULTIPLE SCLEROSIS
     Route: 058
     Dates: start: 20081222

REACTIONS (4)
  - Lymph gland infection [Recovered/Resolved]
  - Testicular pain [Not Recovered/Not Resolved]
  - Injection site inflammation [Unknown]
  - Injection site pain [Unknown]
